FAERS Safety Report 6719212-7 (Version None)
Quarter: 2010Q2

REPORT INFORMATION
  Report Type: 
  Country: None (occurrence: None)
  Receive Date: 20100507
  Receipt Date: 20100427
  Transmission Date: 20101027
  Serious: Yes (Death)
  Sender: FDA-Public Use
  Company Number: 576592

PATIENT
  Age: 35 Year
  Sex: Female

DRUGS (2)
  1. FLUDARABINE PHOSPHATE [Suspect]
     Indication: ACUTE MYELOID LEUKAEMIA
     Dosage: 38.5 MG/M2 MILLIGRAM(S)/SQ. METER, INTRAVENOUS DRIP
     Route: 041
  2. (CYCLOPHOSPHAMIDE) [Concomitant]

REACTIONS (5)
  - BRONCHOPULMONARY ASPERGILLOSIS [None]
  - LOSS OF CONSCIOUSNESS [None]
  - NEUROTOXICITY [None]
  - RENAL FAILURE ACUTE [None]
  - SEPSIS [None]
